FAERS Safety Report 24670139 (Version 1)
Quarter: 2024Q4

REPORT INFORMATION
  Report Type: Report from Study
  Country: US (occurrence: US)
  Receive Date: 20241127
  Receipt Date: 20241127
  Transmission Date: 20250114
  Serious: No
  Sender: DR REDDYS
  Company Number: US-DRL-USA-CLI/USA/24/0017396

PATIENT
  Age: 12 Year
  Sex: Female
  Weight: 47.17 kg

DRUGS (3)
  1. JAVYGTOR [Suspect]
     Active Substance: SAPROPTERIN DIHYDROCHLORIDE
     Indication: Phenylketonuria
     Dosage: 700 MG (DAILY IN THE MORNING)
     Route: 048
  2. JAVYGTOR [Suspect]
     Active Substance: SAPROPTERIN DIHYDROCHLORIDE
     Indication: Phenylketonuria
     Dosage: 700 MG (DAILY IN THE MORNING)
     Route: 048
  3. SAPROPTERIN DIHYDROCHLORIDE [Concomitant]
     Active Substance: SAPROPTERIN DIHYDROCHLORIDE
     Indication: Product used for unknown indication
     Route: 065

REACTIONS (2)
  - Illness [Recovered/Resolved]
  - Gastroenteritis viral [Recovered/Resolved]
